FAERS Safety Report 10170875 (Version 1)
Quarter: 2014Q2

REPORT INFORMATION
  Report Type: Spontaneous
  Country: IN (occurrence: None)
  Receive Date: 20140512
  Receipt Date: 20140512
  Transmission Date: 20141212
  Serious: Yes (Death)
  Sender: FDA-Public Use
  Company Number: INT_00380_2014

PATIENT
  Age: 49 Year
  Sex: Male

DRUGS (2)
  1. CISPLATIN [Suspect]
     Indication: SMALL CELL LUNG CANCER
     Dosage: DAYS 1 AND 8 OF A 3 WEEKLY CYCLE, 6 CYCLES GIVEN
  2. IRINOTECAN [Suspect]
     Indication: SMALL CELL LUNG CANCER
     Dosage: DAYS 1 AND 8 OF A 3 WEEKLY CYCLE, 6 CYCLES GIVEN

REACTIONS (4)
  - Tuberculous pleurisy [None]
  - Metastases to central nervous system [None]
  - Lung neoplasm malignant [None]
  - Malignant neoplasm progression [None]
